FAERS Safety Report 7204044 (Version 2)
Quarter: 2018Q2

REPORT INFORMATION
  Report Type: Spontaneous
  Country: SE (occurrence: SE)
  Receive Date: 20091208
  Receipt Date: 20180618
  Transmission Date: 20180711
  Serious: Yes (Life-Threatening, Other)
  Sender: FDA-Public Use
  Company Number: SE-SANOFI-AVENTIS-200921297GDDC

PATIENT
  Age: 15 Year
  Sex: Female

DRUGS (3)
  1. DAONIL [Suspect]
     Active Substance: GLYBURIDE
     Indication: PRODUCT USED FOR UNKNOWN INDICATION
     Dosage: 2 UNK,1X
     Route: 048
  2. DAONIL [Suspect]
     Active Substance: GLYBURIDE
     Dosage: RECEIVED UNSPECIFIED NUMBER OF TABLETS
     Route: 048
     Dates: start: 2009
  3. PANODIL [Suspect]
     Active Substance: ACETAMINOPHEN
     Indication: PRODUCT USED FOR UNKNOWN INDICATION

REACTIONS (3)
  - Intentional overdose [Unknown]
  - Suicide attempt [Unknown]
  - Hypoglycaemic unconsciousness [Unknown]

NARRATIVE: CASE EVENT DATE: 2009
